FAERS Safety Report 12997065 (Version 1)
Quarter: 2016Q4

REPORT INFORMATION
  Report Type: Spontaneous
  Country: US (occurrence: US)
  Receive Date: 20161205
  Receipt Date: 20161205
  Transmission Date: 20170207
  Serious: No
  Sender: FDA-Public Use
  Company Number: US-BIOGEN-2016BI00325699

PATIENT

DRUGS (2)
  1. TECFIDERA [Suspect]
     Active Substance: DIMETHYL FUMARATE
     Indication: MATERNAL EXPOSURE TIMING UNSPECIFIED
     Route: 064
     Dates: start: 20130101, end: 20151231
  2. TECFIDERA [Suspect]
     Active Substance: DIMETHYL FUMARATE
     Route: 064
     Dates: start: 20140131

REACTIONS (2)
  - Selective eating disorder [Unknown]
  - Foetal exposure timing unspecified [Unknown]
